FAERS Safety Report 20690212 (Version 1)
Quarter: 2022Q2

REPORT INFORMATION
  Report Type: Spontaneous
  Country: US (occurrence: None)
  Receive Date: 20220407
  Receipt Date: 20220407
  Transmission Date: 20220720
  Serious: Yes (Disabling, Other)
  Sender: FDA-Public Use
  Company Number: None

PATIENT
  Age: 35 Year
  Sex: Male
  Weight: 61.23 kg

DRUGS (5)
  1. BUPRENORPHINE [Suspect]
     Active Substance: BUPRENORPHINE
     Indication: Dependence
     Dosage: OTHER QUANTITY : 15/MONTHLY;?FREQUENCY : DAILY;?
     Route: 060
     Dates: start: 20180601
  2. BUPRENORPHINE [Suspect]
     Active Substance: BUPRENORPHINE
     Indication: Pain management
  3. DIAZEPAM [Concomitant]
     Active Substance: DIAZEPAM
  4. Multi-Vitamin [Concomitant]
  5. Iron Vitamin [Concomitant]

REACTIONS (4)
  - Dental caries [None]
  - Tooth loss [None]
  - Gingival bleeding [None]
  - Tooth fracture [None]

NARRATIVE: CASE EVENT DATE: 20210106
